FAERS Safety Report 24188141 (Version 2)
Quarter: 2024Q4

REPORT INFORMATION
  Report Type: Spontaneous
  Country: PT (occurrence: PT)
  Receive Date: 20240808
  Receipt Date: 20241014
  Transmission Date: 20250115
  Serious: Yes (Other)
  Sender: Karo Pharma
  Company Number: PT-Karo Pharma-2160154

PATIENT

DRUGS (1)
  1. TERBINAFINE [Suspect]
     Active Substance: TERBINAFINE\TERBINAFINE HYDROCHLORIDE
     Indication: Product used for unknown indication

REACTIONS (2)
  - Drug-induced liver injury [Recovering/Resolving]
  - Hepatitis toxic [Recovering/Resolving]
